FAERS Safety Report 5455680-9 (Version None)
Quarter: 2007Q3

REPORT INFORMATION
  Report Type: 
  Country: None (occurrence: None)
  Receive Date: 20070918
  Receipt Date: 20070702
  Transmission Date: 20080115
  Serious: Yes (Other)
  Sender: FDA-Public Use
  Company Number: US-ASTRAZENECA-2006UW22362

PATIENT
  Age: 27 Year
  Sex: Female
  Weight: 50.9 kg

DRUGS (3)
  1. SEROQUEL [Suspect]
     Indication: BIPOLAR DISORDER
     Route: 048
     Dates: end: 20050101
  2. SEROQUEL [Suspect]
     Indication: DEPRESSION
     Route: 048
     Dates: end: 20050101
  3. SEROQUEL [Suspect]
     Indication: STRESS
     Route: 048
     Dates: end: 20050101

REACTIONS (1)
  - PANCREATITIS [None]
